FAERS Safety Report 7099895-5 (Version None)
Quarter: 2010Q4

REPORT INFORMATION
  Report Type: 
  Country: None (occurrence: None)
  Receive Date: 20101112
  Receipt Date: 20101105
  Transmission Date: 20110411
  Serious: Yes (Hospitalization, Other)
  Sender: FDA-Public Use
  Company Number: US-GENZYME-THYM-1001712

PATIENT
  Sex: Female
  Weight: 99.79 kg

DRUGS (17)
  1. THYMOGLOBULIN [Suspect]
     Indication: PROPHYLAXIS AGAINST TRANSPLANT REJECTION
     Dosage: 150 MG, QD
     Route: 042
     Dates: start: 20100705, end: 20100705
  2. THYMOGLOBULIN [Suspect]
     Dosage: 150 MG, QD
     Route: 042
     Dates: start: 20100707, end: 20100707
  3. PROGRAF [Concomitant]
     Indication: IMMUNOSUPPRESSION
     Dosage: 2 MG, BID
     Dates: start: 20100715
  4. PROGRAF [Concomitant]
     Dosage: 4 MG, BID
     Dates: start: 20100101
  5. CELLCEPT [Concomitant]
     Dosage: 1000 MG, BID
  6. PREDNISONE [Concomitant]
     Dosage: 15 MG, QD
  7. MYCELEX [Concomitant]
     Dosage: 10 MG, QID
  8. BACTRIM [Concomitant]
     Dosage: UNK MG, 3X/W
  9. ZOVIRAX [Concomitant]
     Dosage: 400 MG, BID
  10. VALCYTE [Concomitant]
     Dosage: 900 MG, BID
  11. TUMS [Concomitant]
     Dosage: 500 MG, TID
  12. LASIX [Concomitant]
     Dosage: 40 MG, BID
  13. JANUVIA [Concomitant]
     Dosage: 100 MG, QD
  14. LANTUS [Concomitant]
     Dosage: 20 U, QD
  15. HUMALOG [Concomitant]
  16. PRILOSEC [Concomitant]
     Dosage: 20 MG, QD
  17. OXYCODONE HCL [Concomitant]
     Dosage: 5 MG, PRN

REACTIONS (1)
  - LIVER TRANSPLANT REJECTION [None]
